FAERS Safety Report 9323588 (Version 1)
Quarter: 2013Q2

REPORT INFORMATION
  Report Type: Spontaneous
  Country: SE (occurrence: SE)
  Receive Date: 20130603
  Receipt Date: 20130603
  Transmission Date: 20140414
  Serious: Yes (Other)
  Sender: FDA-Public Use
  Company Number: SE-ROCHE-1227195

PATIENT
  Sex: Female

DRUGS (2)
  1. PERJETA [Suspect]
     Indication: PRODUCT USED FOR UNKNOWN INDICATION
     Route: 065
  2. HERCEPTIN [Concomitant]
     Indication: PRODUCT USED FOR UNKNOWN INDICATION
     Route: 065

REACTIONS (10)
  - Anxiety [Unknown]
  - Hypoaesthesia [Unknown]
  - Pain in extremity [Unknown]
  - Panic disorder [Unknown]
  - Tremor [Unknown]
  - Hypotension [Unknown]
  - Fatigue [Unknown]
  - Fatigue [Unknown]
  - Fatigue [Unknown]
  - Depressed mood [Unknown]
